FAERS Safety Report 4467106-2 (Version None)
Quarter: 2004Q4

REPORT INFORMATION
  Report Type: 
  Country: None (occurrence: None)
  Receive Date: 20041004
  Receipt Date: 20041004
  Transmission Date: 20050328
  Serious: No
  Sender: FDA-Public Use
  Company Number: None

PATIENT
  Age: 42 Year
  Sex: Female
  Weight: 82.1011 kg

DRUGS (2)
  1. CLIMARA [Suspect]
     Indication: ABDOMINAL HYSTERECTOMY
     Dosage: 1 PATCH WEEKLY
  2. CLIMARA [Suspect]
     Indication: SALPINGO-OOPHORECTOMY BILATERAL
     Dosage: 1 PATCH WEEKLY

REACTIONS (2)
  - PHARMACEUTICAL PRODUCT COMPLAINT [None]
  - UNEVALUABLE EVENT [None]
